FAERS Safety Report 8033456 (Version 9)
Quarter: 2014Q2

REPORT INFORMATION
  Report Type: Report from Study
  Country: JP (occurrence: JP)
  Receive Date: 20110713
  Receipt Date: 20140417
  Transmission Date: 20141212
  Serious: Yes (Hospitalization)
  Sender: FDA-Public Use
  Company Number: JP-CELGENEUS-087-21880-11010933

PATIENT
  Age: 65 Year
  Sex: Female

DRUGS (65)
  1. REVLIMID [Suspect]
     Indication: PLASMA CELL MYELOMA
     Dosage: 25 MILLIGRAM
     Route: 048
     Dates: start: 20100723, end: 20100812
  2. REVLIMID [Suspect]
     Dosage: 25 MILLIGRAM
     Route: 048
     Dates: start: 20100820, end: 20100909
  3. REVLIMID [Suspect]
     Dosage: 25 MILLIGRAM
     Route: 048
     Dates: start: 20100917, end: 20101007
  4. REVLIMID [Suspect]
     Dosage: 25 MILLIGRAM
     Route: 048
     Dates: start: 20101015, end: 20101111
  5. REVLIMID [Suspect]
     Dosage: 25 MILLIGRAM
     Route: 048
     Dates: start: 20101112, end: 20101201
  6. REVLIMID [Suspect]
     Dosage: 20 MILLIGRAM
     Route: 048
     Dates: start: 20110107, end: 20110127
  7. REVLIMID [Suspect]
     Dosage: 20 MILLIGRAM
     Route: 048
     Dates: start: 20110204, end: 20110224
  8. REVLIMID [Suspect]
     Dosage: 20 MILLIGRAM
     Route: 048
     Dates: start: 20110304, end: 20110324
  9. REVLIMID [Suspect]
     Dosage: 20 MILLIGRAM
     Route: 048
     Dates: start: 20110401, end: 20110421
  10. REVLIMID [Suspect]
     Dosage: 20 MILLIGRAM
     Route: 048
     Dates: start: 20110429, end: 20110519
  11. REVLIMID [Suspect]
     Dosage: 15 MILLIGRAM
     Route: 048
     Dates: start: 20110527, end: 20110616
  12. REVLIMID [Suspect]
     Dosage: 15 MILLIGRAM
     Route: 048
     Dates: start: 20110722, end: 20110811
  13. REVLIMID [Suspect]
     Dosage: 10 MILLIGRAM
     Route: 048
     Dates: start: 20110916, end: 20110922
  14. REVLIMID [Suspect]
     Dosage: 5 MILLIGRAM
     Route: 048
     Dates: start: 20110930, end: 20111013
  15. REVLIMID [Suspect]
     Dosage: 5 MILLIGRAM
     Route: 048
     Dates: start: 20111021, end: 20111103
  16. REVLIMID [Suspect]
     Dosage: 5 MILLIGRAM
     Route: 048
     Dates: start: 20111118, end: 20111208
  17. REVLIMID [Suspect]
     Dosage: 5 MILLIGRAM
     Route: 048
     Dates: start: 20111216, end: 20120105
  18. REVLIMID [Suspect]
     Dosage: 5 MILLIGRAM
     Route: 048
     Dates: start: 20120210, end: 20120301
  19. REVLIMID [Suspect]
     Dosage: 5 MILLIGRAM
     Route: 048
     Dates: start: 20120309, end: 20120329
  20. REVLIMID [Suspect]
     Dosage: 5 MILLIGRAM
     Route: 048
     Dates: start: 20120406, end: 20120426
  21. REVLIMID [Suspect]
     Dosage: 5 MILLIGRAM
     Route: 048
     Dates: start: 20120608, end: 20120628
  22. REVLIMID [Suspect]
     Dosage: 5 MILLIGRAM
     Route: 048
     Dates: start: 20120706, end: 20120726
  23. REVLIMID [Suspect]
     Dosage: 5 MILLIGRAM
     Route: 048
     Dates: start: 20120803, end: 20120823
  24. REVLIMID [Suspect]
     Dosage: 5 MILLIGRAM
     Route: 048
     Dates: start: 20120928, end: 20121018
  25. REVLIMID [Suspect]
     Dosage: 5 MILLIGRAM
     Route: 048
     Dates: start: 20121214, end: 20130103
  26. REVLIMID [Suspect]
     Dosage: 10 MILLIGRAM
     Route: 048
     Dates: start: 20130208, end: 20130228
  27. REVLIMID [Suspect]
     Dosage: 10 MILLIGRAM
     Route: 048
     Dates: start: 20130405, end: 20130425
  28. REVLIMID [Suspect]
     Dosage: 10 MILLIGRAM
     Route: 048
     Dates: start: 20130607, end: 20130627
  29. LENADEX [Suspect]
     Indication: PLASMA CELL MYELOMA
     Dosage: 40 MILLIGRAM
     Route: 048
     Dates: start: 20100723, end: 20100726
  30. LENADEX [Suspect]
     Dosage: 40 MILLIGRAM
     Route: 048
     Dates: start: 20100730, end: 20100802
  31. LENADEX [Suspect]
     Dosage: 40 MILLIGRAM
     Route: 048
     Dates: start: 20100806, end: 20100809
  32. LENADEX [Suspect]
     Dosage: 40 MILLIGRAM
     Route: 048
     Dates: start: 20100820, end: 20100823
  33. LENADEX [Suspect]
     Dosage: 20 MILLIGRAM
     Route: 048
     Dates: start: 20110107, end: 20110107
  34. LENADEX [Suspect]
     Dosage: 20 MILLIGRAM
     Route: 048
     Dates: start: 20110204, end: 20110204
  35. LENADEX [Suspect]
     Dosage: 20 MILLIGRAM
     Route: 048
     Dates: start: 20110304, end: 20110304
  36. LENADEX [Suspect]
     Dosage: 20 MILLIGRAM
     Route: 048
     Dates: start: 20110401, end: 20110401
  37. LENADEX [Suspect]
     Dosage: 20 MILLIGRAM
     Route: 048
     Dates: start: 20110429, end: 20110429
  38. LENADEX [Suspect]
     Dosage: 20 MILLIGRAM
     Route: 048
     Dates: start: 20130208, end: 20130208
  39. LENADEX [Suspect]
     Dosage: 20 MILLIGRAM
     Route: 048
     Dates: start: 20130405, end: 20130405
  40. LENADEX [Suspect]
     Dosage: 20 MILLIGRAM
     Route: 048
     Dates: start: 20130607, end: 20130607
  41. GASTER [Suspect]
     Indication: PRODUCT USED FOR UNKNOWN INDICATION
     Route: 065
  42. MOBIC [Concomitant]
     Indication: PLASMA CELL MYELOMA
     Dosage: 10 MILLIGRAM
     Route: 048
     Dates: start: 200908, end: 20130823
  43. NU-LOTAN [Concomitant]
     Indication: HYPERTENSION
     Dosage: 50 MILLIGRAM
     Route: 048
     Dates: start: 200908, end: 20120823
  44. ALFAROL [Concomitant]
     Indication: PLASMA CELL MYELOMA
     Dosage: .5 MILLIGRAM
     Route: 048
     Dates: start: 200908, end: 20130822
  45. ALFAROL [Concomitant]
     Indication: PROPHYLAXIS
     Dosage: .5 MILLIGRAM
     Route: 048
     Dates: start: 20101029, end: 20110203
  46. MAGMITT [Concomitant]
     Indication: PRODUCT USED FOR UNKNOWN INDICATION
     Dosage: 500 MILLIGRAM
     Route: 048
     Dates: start: 200909, end: 20100819
  47. MAGMITT [Concomitant]
     Indication: PROPHYLAXIS
     Dosage: 750 MILLIGRAM
     Route: 048
     Dates: start: 20100820, end: 20100902
  48. MAGMITT [Concomitant]
     Dosage: 500 MILLIGRAM
     Route: 048
     Dates: start: 20100903, end: 20101028
  49. MAGMITT [Concomitant]
     Dosage: 500 MILLIGRAM
     Route: 048
     Dates: start: 20101029, end: 20110203
  50. MAGMITT [Concomitant]
     Dosage: 500 MILLIGRAM
     Route: 048
     Dates: start: 20110204, end: 20130822
  51. AMLODIN OD [Concomitant]
     Indication: PRODUCT USED FOR UNKNOWN INDICATION
     Dosage: 5 MILLIGRAM
     Route: 048
     Dates: start: 200912, end: 20110203
  52. LANSOPRAZOLE-OD [Concomitant]
     Indication: PRODUCT USED FOR UNKNOWN INDICATION
     Dosage: 30 MILLIGRAM
     Route: 048
     Dates: start: 201004, end: 20130822
  53. FAMOTIDINE D [Concomitant]
     Indication: PRODUCT USED FOR UNKNOWN INDICATION
     Dosage: 40 MILLIGRAM
     Route: 048
     Dates: start: 20101125, end: 20101202
  54. ADETPHOS [Concomitant]
     Indication: PROPHYLAXIS
     Dosage: 120 MILLIGRAM
     Route: 048
     Dates: start: 20101125, end: 20110105
  55. METHYCOBAL [Concomitant]
     Indication: PROPHYLAXIS
     Dosage: 500 MICROGRAM
     Route: 041
     Dates: start: 20101117, end: 20101124
  56. INFLUENZA HA VACCINE [Concomitant]
     Indication: PROPHYLAXIS
     Dosage: .5 MILLILITER
     Route: 041
     Dates: start: 20101029, end: 20101029
  57. INFLUENZA HA VACCINE [Concomitant]
     Dosage: .5 MILLILITER
     Route: 058
     Dates: start: 20111118, end: 20111118
  58. AMLODIPINE OD [Concomitant]
     Indication: HYPERTENSION
     Dosage: 5 MILLIGRAM
     Route: 048
     Dates: start: 200912, end: 20120823
  59. ALKERAN [Concomitant]
     Indication: PLASMA CELL MYELOMA
     Dosage: 2 MILLIGRAM
     Route: 048
     Dates: start: 20130308, end: 20130328
  60. ALKERAN [Concomitant]
     Dosage: 2 MILLIGRAM
     Route: 048
     Dates: start: 20130510, end: 20130530
  61. ALKERAN [Concomitant]
     Dosage: 2 MILLIGRAM
     Route: 048
     Dates: start: 20130726, end: 20130815
  62. MIKELAN [Concomitant]
     Indication: HYPERTENSION
     Dosage: 10 MILLIGRAM
     Route: 048
     Dates: start: 20120113, end: 20130822
  63. REZALTAS [Concomitant]
     Indication: HYPERTENSION
     Dosage: 1 DOSAGE FORMS
     Route: 048
     Dates: start: 20120831, end: 20130606
  64. CO-DIO [Concomitant]
     Indication: HYPERTENSION
     Dosage: 1 DOSAGE FORMS
     Route: 048
     Dates: start: 20130607, end: 20130822
  65. ZOFRAN ZYDIS [Concomitant]
     Indication: PROPHYLAXIS
     Dosage: 1 DOSAGE FORMS
     Route: 048
     Dates: start: 20130726, end: 20130808

REACTIONS (15)
  - VIIth nerve paralysis [Recovering/Resolving]
  - Conjunctivitis viral [Recovered/Resolved]
  - Upper respiratory tract inflammation [Recovered/Resolved]
  - Upper respiratory tract inflammation [Recovered/Resolved]
  - Pruritus [Recovered/Resolved]
  - Herpes virus infection [Recovered/Resolved]
  - Neutrophil count decreased [Recovered/Resolved]
  - Neutrophil count decreased [Recovered/Resolved]
  - Bronchitis [Recovered/Resolved]
  - Upper respiratory tract infection [Recovered/Resolved]
  - Nasopharyngitis [Recovered/Resolved]
  - Urticaria [Recovered/Resolved]
  - Neutrophil count decreased [Recovered/Resolved]
  - Nasopharyngitis [Recovered/Resolved]
  - Protein total decreased [Recovered/Resolved]
